FAERS Safety Report 8037493-7 (Version None)
Quarter: 2012Q1

REPORT INFORMATION
  Report Type: 
  Country: None (occurrence: None)
  Receive Date: 20120111
  Receipt Date: 20120109
  Transmission Date: 20120608
  Serious: Yes (Other)
  Sender: FDA-Public Use
  Company Number: US-PFIZER INC-2011283252

PATIENT
  Sex: Female
  Weight: 81.633 kg

DRUGS (2)
  1. CHANTIX [Suspect]
     Indication: SMOKING CESSATION THERAPY
     Dosage: 1 MG, 2X/DAY
     Route: 048
     Dates: start: 20111114, end: 20111101
  2. NORVASC [Concomitant]
     Indication: HYPERTENSION
     Dosage: UNK

REACTIONS (9)
  - HALLUCINATION [None]
  - ILLUSION [None]
  - ABNORMAL DREAMS [None]
  - NAUSEA [None]
  - HYPERTENSION [None]
  - MOOD ALTERED [None]
  - DIARRHOEA [None]
  - VOMITING [None]
  - MALAISE [None]
